APPROVED DRUG PRODUCT: PAROXETINE MESYLATE
Active Ingredient: PAROXETINE MESYLATE
Strength: EQ 7.5MG BASE
Dosage Form/Route: CAPSULE;ORAL
Application: A207188 | Product #001 | TE Code: AB
Applicant: PRINSTON PHARMACEUTICAL INC
Approved: Aug 18, 2017 | RLD: No | RS: No | Type: RX